FAERS Safety Report 4900935-7 (Version None)
Quarter: 2006Q1

REPORT INFORMATION
  Report Type: 
  Country: None (occurrence: None)
  Receive Date: 20060203
  Receipt Date: 20051207
  Transmission Date: 20060701
  Serious: Yes (Other)
  Sender: FDA-Public Use
  Company Number: US-MERCK-0512USA01381

PATIENT
  Age: 50 Year
  Sex: Female
  Weight: 73 kg

DRUGS (2)
  1. VIOXX [Suspect]
     Indication: MONARTHRITIS
     Route: 048
     Dates: start: 20040101, end: 20041201
  2. ASPIRIN [Concomitant]
     Route: 065

REACTIONS (4)
  - ARTHRALGIA [None]
  - CEREBROVASCULAR ACCIDENT [None]
  - JOINT SWELLING [None]
  - NECK PAIN [None]
